FAERS Safety Report 5506630-8 (Version None)
Quarter: 2007Q4

REPORT INFORMATION
  Report Type: 
  Country: None (occurrence: None)
  Receive Date: 20071105
  Receipt Date: 20071025
  Transmission Date: 20080405
  Serious: Yes (Hospitalization)
  Sender: FDA-Public Use
  Company Number: FR-ROCHE-511915

PATIENT
  Age: 67 Year
  Sex: Male
  Weight: 77 kg

DRUGS (17)
  1. MYCOPHENOLATE MOFETIL [Suspect]
     Indication: DRUG USE FOR UNKNOWN INDICATION
     Route: 065
  2. MYCOPHENOLATE MOFETIL [Suspect]
     Route: 065
     Dates: start: 20070610
  3. MYCOPHENOLATE MOFETIL [Suspect]
     Route: 065
     Dates: start: 20070618
  4. MYCOPHENOLATE MOFETIL [Suspect]
     Route: 065
     Dates: start: 20070710
  5. VALGANCICLOVIR HCL [Suspect]
     Route: 048
     Dates: start: 20070622
  6. PROGRAF [Suspect]
     Indication: DRUG USE FOR UNKNOWN INDICATION
     Route: 065
  7. PROGRAF [Suspect]
     Route: 065
     Dates: start: 20070704
  8. PROGRAF [Suspect]
     Route: 065
     Dates: start: 20070604
  9. SOLUPRED [Suspect]
     Indication: DRUG USE FOR UNKNOWN INDICATION
     Route: 065
     Dates: start: 20070604
  10. TENORMIN [Concomitant]
     Dates: start: 20070620
  11. OMEPRAZOLE [Concomitant]
  12. NOVOMIX [Concomitant]
     Dosage: AS OF 22 JUNE 2007, GIVEN AS NEEDED. AS OF AN UNSPECIFIED DATE, GIVEN AT A TOTAL DAILY DOSE OF 22 U+
     Dates: start: 20070622
  13. TARDYFERON [Concomitant]
     Dosage: AS OF 22 JUNE 2007, GIVEN AT A TOTAL DAILY DOSE OF 80 MG. AS OF 04 JULY 2007, GIVEN AT A TOTAL DAIL+
     Dates: start: 20070622
  14. VITAMIN B1/VITAMIN B6 [Concomitant]
     Dosage: DRUG NAME REPORTED AS VIT B1 B6.
     Dates: start: 20070618
  15. LOVENOX [Concomitant]
     Dates: start: 20070623
  16. TAHOR [Concomitant]
     Dates: start: 20070610
  17. KARDEGIC [Concomitant]
     Dosage: TOTAL DAILY DOSE REPORTED AS 160.
     Dates: start: 20070718

REACTIONS (1)
  - LUNG DISORDER [None]
